FAERS Safety Report 7411972-5 (Version None)
Quarter: 2011Q2

REPORT INFORMATION
  Report Type: 
  Country: None (occurrence: None)
  Receive Date: 20110408
  Receipt Date: 20110408
  Transmission Date: 20111010
  Serious: Yes (Hospitalization)
  Sender: FDA-Public Use
  Company Number: None

PATIENT
  Age: 84 Year
  Sex: Male
  Weight: 94 kg

DRUGS (1)
  1. LISINOPRIL [Suspect]
     Dates: start: 20100125

REACTIONS (1)
  - ORTHOSTATIC INTOLERANCE [None]
